FAERS Safety Report 23914419 (Version 1)
Quarter: 2024Q2

REPORT INFORMATION
  Report Type: Report from Study
  Country: CN (occurrence: CN)
  Receive Date: 20240529
  Receipt Date: 20240529
  Transmission Date: 20240716
  Serious: Yes (Other)
  Sender: FDA-Public Use
  Company Number: CN-UCBSA-2024026130

PATIENT

DRUGS (2)
  1. LEVETIRACETAM [Suspect]
     Active Substance: LEVETIRACETAM
     Indication: Epilepsy
     Dosage: 10 MILLIGRAM/ (KILOGRAM-DAY) (INITIAL DOSAGE)
     Route: 048
  2. LEVETIRACETAM [Suspect]
     Active Substance: LEVETIRACETAM
     Dosage: INCREASED ONCE A WEEK UNTIL 40 MILLIGRAM/ (KILOGRAM-DAY) WAS MAINTAINED FOR 16 WEEKS OF CONTINUOUS T
     Route: 048

REACTIONS (8)
  - Thrombocytopenia [Unknown]
  - Leukopenia [Unknown]
  - Nausea [Unknown]
  - Somnolence [Unknown]
  - Malaise [Unknown]
  - Headache [Unknown]
  - Hepatic function abnormal [Unknown]
  - Drug ineffective [Unknown]
